FAERS Safety Report 4263820-2 (Version None)
Quarter: 2004Q1

REPORT INFORMATION
  Report Type: 
  Country: None (occurrence: None)
  Receive Date: 20040105
  Receipt Date: 20040105
  Transmission Date: 20041129
  Serious: No
  Sender: FDA-Public Use
  Company Number: None

PATIENT
  Age: 15 Year
  Sex: Male
  Weight: 86.637 kg

DRUGS (6)
  1. TOPIRMATE [Suspect]
     Indication: BIPOLAR DISORDER
     Dosage: 25 MG PO BID; INCREASED TO 50 MG PO BID ON SAY #2
     Route: 048
  2. ARIPIPRAZOLE [Concomitant]
  3. DOXYCYCLINE [Concomitant]
  4. CARBAMAZEPINE [Concomitant]
  5. CITALOPRAM [Concomitant]
  6. VENLAFAXINE HCL [Concomitant]

REACTIONS (3)
  - AGITATION [None]
  - ANXIETY [None]
  - PANIC ATTACK [None]
